FAERS Safety Report 4939538-7 (Version None)
Quarter: 2006Q1

REPORT INFORMATION
  Report Type: 
  Country: None (occurrence: None)
  Receive Date: 20060306
  Receipt Date: 20060220
  Transmission Date: 20060701
  Serious: Yes (Hospitalization)
  Sender: FDA-Public Use
  Company Number: FR200602003922

PATIENT
  Age: 70 Year
  Sex: Male

DRUGS (3)
  1. ZYPREXA [Suspect]
     Indication: DEMENTIA
     Dosage: 2.5 MG, DAILY (1/D), ORAL
     Route: 048
     Dates: start: 20051201
  2. SEROPRAM /SCH/ (CITALOPRAM HYDROBROMIDE) [Concomitant]
  3. ATARAX [Concomitant]

REACTIONS (3)
  - BLADDER DISTENSION [None]
  - RENAL FAILURE ACUTE [None]
  - URINARY RETENTION [None]
